FAERS Safety Report 4329051-2 (Version None)
Quarter: 2004Q1

REPORT INFORMATION
  Report Type: 
  Country: None (occurrence: None)
  Receive Date: 20040329
  Receipt Date: 20031215
  Transmission Date: 20041129
  Serious: No
  Sender: FDA-Public Use
  Company Number: 03P-163-0244730-00

PATIENT
  Age: 47 Year
  Sex: Female
  Weight: 85.2762 kg

DRUGS (17)
  1. HUMIRA [Suspect]
     Indication: RHEUMATOID ARTHRITIS
     Dosage: 40 MG, 1 IN 2 WK, SUBCUTANEOUS
     Route: 058
     Dates: start: 20031115
  2. PREDNISONE [Concomitant]
  3. SULFASALAZINE [Concomitant]
  4. HYOSCYAMINE SULFATE [Concomitant]
  5. PROPRANOLOL HYDROCHLORIDE [Concomitant]
  6. CYCLOBENZAPRINE HYDROCHLORIDE [Concomitant]
  7. FLUOXETINE HCL [Concomitant]
  8. LANSOPRAZOLE [Concomitant]
  9. DOMPERIDONE [Concomitant]
  10. RANITIDINE HYDROCHLORIDE [Concomitant]
  11. URSODEOXYCHOLIC ACID [Concomitant]
  12. ZOCOR [Concomitant]
  13. ESTRADIOL [Concomitant]
  14. CALCITONIN-SALMON [Concomitant]
  15. VICODIN [Concomitant]
  16. ASCORBIC ACID [Concomitant]
  17. CALCIUM CITRATE [Concomitant]

REACTIONS (1)
  - INJECTION [None]
